FAERS Safety Report 20718611 (Version 1)
Quarter: 2022Q2

REPORT INFORMATION
  Report Type: Spontaneous
  Country: US (occurrence: None)
  Receive Date: 20220418
  Receipt Date: 20220418
  Transmission Date: 20220721
  Serious: No
  Sender: FDA-Public Use
  Company Number: US-SUPERNUS Pharmaceuticals, Inc.-SUP202203-000374

PATIENT
  Age: 13 Year
  Sex: Male

DRUGS (1)
  1. QELBREE [Suspect]
     Active Substance: VILOXAZINE HYDROCHLORIDE
     Indication: Autism spectrum disorder

REACTIONS (4)
  - Hallucination, auditory [Unknown]
  - Anger [Unknown]
  - Condition aggravated [Unknown]
  - Product use in unapproved indication [Unknown]
